FAERS Safety Report 7032692-5 (Version None)
Quarter: 2010Q4

REPORT INFORMATION
  Report Type: 
  Country: None (occurrence: None)
  Receive Date: 20101007
  Receipt Date: 20100928
  Transmission Date: 20110411
  Serious: Yes (Other)
  Sender: FDA-Public Use
  Company Number: US-SANOFI-AVENTIS-2010SA058128

PATIENT
  Age: 29 Year
  Sex: Female

DRUGS (7)
  1. MYCOPHENOLATE MOFETIL [Suspect]
     Dates: start: 20070401
  2. MYCOPHENOLATE MOFETIL [Suspect]
  3. PREDNISONE [Suspect]
     Dates: start: 20050101
  4. PREDNISONE [Suspect]
     Dates: start: 20090401
  5. LEFLUNOMIDE [Suspect]
     Dates: start: 19990101, end: 20050101
  6. METHOTREXATE [Suspect]
     Dates: start: 19990101, end: 20050101
  7. PLAQUENIL [Suspect]
     Dates: start: 19990101, end: 20050101

REACTIONS (5)
  - BLOOD CREATININE INCREASED [None]
  - HAEMATURIA [None]
  - LUPUS NEPHRITIS [None]
  - NECROSIS [None]
  - PROTEINURIA [None]
